FAERS Safety Report 25267319 (Version 2)
Quarter: 2025Q2

REPORT INFORMATION
  Report Type: Spontaneous
  Country: US (occurrence: US)
  Receive Date: 20250505
  Receipt Date: 20250508
  Transmission Date: 20250716
  Serious: Yes (Other)
  Sender: BIOVITRUM
  Company Number: US-BIOVITRUM-2025-US-006130

PATIENT
  Age: 76 Year
  Sex: Female

DRUGS (1)
  1. VONJO [Suspect]
     Active Substance: PACRITINIB
     Indication: Myelofibrosis
     Route: 048
     Dates: start: 20250409

REACTIONS (12)
  - Diarrhoea [Unknown]
  - Full blood count abnormal [Unknown]
  - Platelet count decreased [Unknown]
  - Therapeutic product effect delayed [Unknown]
  - Fluid retention [Unknown]
  - Oedema peripheral [Unknown]
  - Swelling face [Unknown]
  - Swelling of eyelid [Unknown]
  - Weight increased [Unknown]
  - Full blood count decreased [Unknown]
  - Walking aid user [Unknown]
  - Muscle atrophy [Unknown]
